FAERS Safety Report 9011884 (Version 1)
Quarter: 2012Q4

REPORT INFORMATION
  Report Type: Spontaneous
  Country: IT (occurrence: None)
  Receive Date: 20121228
  Receipt Date: 20121228
  Transmission Date: 20130627
  Serious: Yes (Other)
  Sender: FDA-Public Use
  Company Number: HRA-CDB20120326

PATIENT
  Age: 34 Year
  Sex: Female

DRUGS (1)
  1. ELLAONE [Suspect]
     Indication: CONTRACEPTION
     Dates: start: 201211, end: 201211

REACTIONS (5)
  - Product packaging quantity issue [None]
  - Unintended pregnancy [None]
  - Drug ineffective [None]
  - Abortion spontaneous [None]
  - Exposure during pregnancy [None]
